FAERS Safety Report 4653855-X (Version None)
Quarter: 2005Q2

REPORT INFORMATION
  Report Type: 
  Country: None (occurrence: None)
  Receive Date: 20050404
  Receipt Date: 20050117
  Transmission Date: 20051028
  Serious: No
  Sender: FDA-Public Use
  Company Number: USA050188685

PATIENT
  Sex: Male

DRUGS (2)
  1. CYMBALTA [Suspect]
     Indication: DEPRESSION
     Dosage: 30 MG
     Dates: start: 20050101
  2. ARICEPT [Concomitant]

REACTIONS (2)
  - DRUG INTERACTION [None]
  - MYOCLONUS [None]
